FAERS Safety Report 5129083-0 (Version None)
Quarter: 2006Q4

REPORT INFORMATION
  Report Type: 
  Country: None (occurrence: None)
  Receive Date: 20061016
  Receipt Date: 20061016
  Transmission Date: 20070319
  Serious: Yes (Hospitalization)
  Sender: FDA-Public Use
  Company Number: None

PATIENT
  Age: 82 Year
  Sex: Female
  Weight: 57.4 kg

DRUGS (8)
  1. WARFARIN SODIUM [Suspect]
     Indication: ATRIAL FIBRILLATION
     Dosage: 5MG  DAILY    PO
     Route: 048
     Dates: start: 20060126, end: 20060211
  2. HYDROCHLOROTHIAZIDE [Concomitant]
  3. DILTIAZEM HCL [Concomitant]
  4. ENALAPRIL MALEATE [Concomitant]
  5. BUFFERIN [Concomitant]
  6. ATORVASTATIN CALCIUM [Concomitant]
  7. ESOMEPRAZOLE MAGNESIUM [Concomitant]
  8. ASPIRIN [Concomitant]

REACTIONS (8)
  - ARTERIOVENOUS MALFORMATION [None]
  - ASTHENIA [None]
  - FAECES DISCOLOURED [None]
  - GASTRIC ULCER [None]
  - HAEMATOCRIT DECREASED [None]
  - INTERNATIONAL NORMALISED RATIO INCREASED [None]
  - OCCULT BLOOD POSITIVE [None]
  - PALPITATIONS [None]
